FAERS Safety Report 17074834 (Version 7)
Quarter: 2020Q4

REPORT INFORMATION
  Report Type: Spontaneous
  Country: AR (occurrence: AR)
  Receive Date: 20191126
  Receipt Date: 20201221
  Transmission Date: 20210113
  Serious: Yes (Other)
  Sender: FDA-Public Use
  Company Number: AR-GLAXOSMITHKLINE-AR2019AMR126914

PATIENT
  Age: 71 Year
  Sex: Female

DRUGS (3)
  1. LEVOFLOXACIN. [Suspect]
     Active Substance: LEVOFLOXACIN
     Indication: PRODUCT USED FOR UNKNOWN INDICATION
     Dosage: UNK (500)
  2. NUCALA [Suspect]
     Active Substance: MEPOLIZUMAB
     Indication: ASTHMA
     Dosage: UNK
     Dates: start: 201812
  3. SERETIDE [Suspect]
     Active Substance: FLUTICASONE PROPIONATE\SALMETEROL XINAFOATE
     Indication: PRODUCT USED FOR UNKNOWN INDICATION
     Dosage: UNK, BID

REACTIONS (22)
  - Nasal congestion [Unknown]
  - Sneezing [Not Recovered/Not Resolved]
  - Blindness unilateral [Unknown]
  - Myalgia [Unknown]
  - Nasopharyngitis [Unknown]
  - Productive cough [Unknown]
  - Fall [Unknown]
  - Emotional distress [Unknown]
  - Arm amputation [Recovered/Resolved]
  - Ocular discomfort [Unknown]
  - Limb operation [Unknown]
  - Rhinorrhoea [Unknown]
  - Spinal fracture [Unknown]
  - Cough [Not Recovered/Not Resolved]
  - Quarantine [Unknown]
  - Vasculitis [Unknown]
  - Chest discomfort [Unknown]
  - Hypersensitivity [Not Recovered/Not Resolved]
  - Spinal pain [Unknown]
  - Lacrimation increased [Unknown]
  - Mood altered [Unknown]
  - Pain in extremity [Unknown]

NARRATIVE: CASE EVENT DATE: 20201210
